FAERS Safety Report 5498281-9 (Version None)
Quarter: 2007Q4

REPORT INFORMATION
  Report Type: 
  Country: None (occurrence: None)
  Receive Date: 20071025
  Receipt Date: 20070814
  Transmission Date: 20080405
  Serious: Yes (Hospitalization)
  Sender: FDA-Public Use
  Company Number: A0648560A

PATIENT
  Age: 85 Year
  Sex: Female

DRUGS (2)
  1. ADVAIR DISKUS 100/50 [Suspect]
     Indication: EMPHYSEMA
     Route: 055
     Dates: start: 20000101
  2. IBUPROFEN [Concomitant]

REACTIONS (6)
  - BRONCHITIS [None]
  - CATARACT [None]
  - DYSGEUSIA [None]
  - GLAUCOMA [None]
  - INTRAOCULAR PRESSURE INCREASED [None]
  - PNEUMONIA [None]
